FAERS Safety Report 5816555-6 (Version None)
Quarter: 2008Q3

REPORT INFORMATION
  Report Type: 
  Country: None (occurrence: None)
  Receive Date: 20080716
  Receipt Date: 20070621
  Transmission Date: 20090109
  Serious: Yes (Other)
  Sender: FDA-Public Use
  Company Number: US-JNJFOC-20070605278

PATIENT
  Age: 24 Year
  Sex: Female
  Weight: 58.9676 kg

DRUGS (3)
  1. MOTRIN IB [Suspect]
     Indication: PAIN
     Dosage: 200 MG, 2 IN 1 TOTAL, ORAL
     Route: 048
     Dates: start: 20070618, end: 20070619
  2. MOTRIN IB [Suspect]
     Indication: PYREXIA
     Dosage: 200 MG, 2 IN 1 TOTAL, ORAL
     Route: 048
     Dates: start: 20070618, end: 20070619
  3. PENICILLIN [Concomitant]

REACTIONS (2)
  - DIARRHOEA HAEMORRHAGIC [None]
  - FAECES DISCOLOURED [None]
